FAERS Safety Report 11652594 (Version 2)
Quarter: 2015Q4

REPORT INFORMATION
  Report Type: Spontaneous
  Country: US (occurrence: US)
  Receive Date: 20151022
  Receipt Date: 20151026
  Transmission Date: 20160304
  Serious: No
  Sender: FDA-Public Use
  Company Number: US-009507513-1510USA008612

PATIENT
  Age: 25 Year
  Sex: Female
  Weight: 108.84 kg

DRUGS (2)
  1. NEXPLANON [Suspect]
     Active Substance: ETONOGESTREL
     Indication: CONTRACEPTION
     Dosage: 1 ROD UPTO 3 YEARS, IMPLANTED IN LEFT ARM
     Route: 059
     Dates: start: 20150930
  2. PROCARDIA [Concomitant]
     Active Substance: NIFEDIPINE
     Dosage: 10 MG, QD

REACTIONS (4)
  - Mood swings [Unknown]
  - Metrorrhagia [Unknown]
  - Pruritus [Unknown]
  - Emotional disorder [Unknown]

NARRATIVE: CASE EVENT DATE: 20151011
